FAERS Safety Report 5057155-8 (Version None)
Quarter: 2006Q3

REPORT INFORMATION
  Report Type: 
  Country: None (occurrence: None)
  Receive Date: 20060721
  Receipt Date: 20060712
  Transmission Date: 20061208
  Serious: Yes (Other)
  Sender: FDA-Public Use
  Company Number: DE-GLAXOSMITHKLINE-B0430687A

PATIENT
  Sex: Female

DRUGS (1)
  1. FORMIGRAN [Suspect]
     Indication: MIGRAINE
     Route: 048

REACTIONS (1)
  - ASTHMA [None]
